FAERS Safety Report 5416458-5 (Version None)
Quarter: 2007Q3

REPORT INFORMATION
  Report Type: 
  Country: None (occurrence: None)
  Receive Date: 20070813
  Receipt Date: 20070813
  Transmission Date: 20080115
  Serious: Yes (Hospitalization)
  Sender: FDA-Public Use
  Company Number: None

PATIENT
  Sex: Female
  Weight: 75 kg

DRUGS (3)
  1. CARBOPLATIN [Suspect]
     Dosage: 628 MG
  2. TAXOTERE [Suspect]
     Dosage: 139 MG
  3. TAXOL [Suspect]
     Dosage: 111 MG

REACTIONS (5)
  - CULTURE WOUND POSITIVE [None]
  - ERYTHEMA [None]
  - PULMONARY EMBOLISM [None]
  - RECTAL HAEMORRHAGE [None]
  - STAPHYLOCOCCAL INFECTION [None]
